FAERS Safety Report 19751194 (Version 2)
Quarter: 2025Q1

REPORT INFORMATION
  Report Type: Spontaneous
  Country: US (occurrence: US)
  Receive Date: 20210826
  Receipt Date: 20250128
  Transmission Date: 20250409
  Serious: No
  Sender: SANOFI AVENTIS
  Company Number: US-SA-SAC20210825000323

PATIENT
  Age: 49 Year
  Sex: Female

DRUGS (20)
  1. DUPIXENT [Suspect]
     Active Substance: DUPILUMAB
     Indication: Asthma
     Dosage: 300 MG, QOW
     Route: 058
     Dates: start: 20210720
  2. PREDNISONE [Concomitant]
     Active Substance: PREDNISONE
     Dates: start: 202107
  3. SELENIUM [Concomitant]
     Active Substance: SELENIUM
  4. MONTELUKAST [Concomitant]
     Active Substance: MONTELUKAST
  5. SYMBICORT [Concomitant]
     Active Substance: BUDESONIDE\FORMOTEROL FUMARATE DIHYDRATE
  6. PREDNISONE [Concomitant]
     Active Substance: PREDNISONE
  7. FLUCONAZOLE [Concomitant]
     Active Substance: FLUCONAZOLE
  8. DOTAREM [Concomitant]
     Active Substance: GADOTERATE MEGLUMINE
  9. PREDNISONE [Concomitant]
     Active Substance: PREDNISONE
  10. GABAPENTIN [Concomitant]
     Active Substance: GABAPENTIN
  11. GAVILYTE G [Concomitant]
     Active Substance: POLYETHYLENE GLYCOL 3350\POTASSIUM CHLORIDE\SODIUM BICARBONATE\SODIUM CHLORIDE\SODIUM SULFATE
  12. INCRUSE ELLIPTA [Concomitant]
     Active Substance: UMECLIDINIUM BROMIDE
  13. ALBUTEROL [Concomitant]
     Active Substance: ALBUTEROL
  14. VITAMIN D [Concomitant]
     Active Substance: VITAMIN D NOS
  15. ALBUTEROL SULFATE [Concomitant]
     Active Substance: ALBUTEROL SULFATE
  16. ONDANSETRON [Concomitant]
     Active Substance: ONDANSETRON
  17. TERCONAZOLE [Concomitant]
     Active Substance: TERCONAZOLE
  18. SUMATRIPTAN [Concomitant]
     Active Substance: SUMATRIPTAN
  19. NYSTATIN [Concomitant]
     Active Substance: NYSTATIN
  20. FLUTICASONE [Concomitant]
     Active Substance: FLUTICASONE

REACTIONS (3)
  - Impaired quality of life [Not Recovered/Not Resolved]
  - Headache [Not Recovered/Not Resolved]
  - Therapeutic response decreased [Unknown]
